FAERS Safety Report 21472942 (Version 2)
Quarter: 2022Q4

REPORT INFORMATION
  Report Type: Spontaneous
  Country: US (occurrence: US)
  Receive Date: 20221018
  Receipt Date: 20221125
  Transmission Date: 20230113
  Serious: Yes (Other)
  Sender: FDA-Public Use
  Company Number: US-ABBVIE-4146514

PATIENT
  Sex: Male
  Weight: 65.771 kg

DRUGS (6)
  1. IMBRUVICA [Suspect]
     Active Substance: IBRUTINIB
     Indication: Chronic lymphocytic leukaemia
     Dosage: FREQUENCY: EVERY OTHER DAY
     Route: 048
     Dates: start: 20170530
  2. TAMSULOSIN HYDROCHLORIDE [Concomitant]
     Active Substance: TAMSULOSIN HYDROCHLORIDE
     Indication: Product used for unknown indication
     Route: 048
  3. FINASTERIDE [Concomitant]
     Active Substance: FINASTERIDE
     Indication: Product used for unknown indication
     Route: 048
  4. Multi Mega Minerals [Concomitant]
     Indication: Product used for unknown indication
     Route: 048
  5. CVS Melatonin [Concomitant]
     Indication: Product used for unknown indication
     Route: 048
  6. ASPIRIN [Concomitant]
     Active Substance: ASPIRIN
     Indication: Product used for unknown indication
     Route: 048

REACTIONS (9)
  - Thrombocytopenia [Unknown]
  - Weight decreased [Unknown]
  - Cytopenia [Unknown]
  - Vitamin B12 deficiency [Unknown]
  - Dizziness [Unknown]
  - Anaemia [Unknown]
  - Skin plaque [Unknown]
  - Lymphocytic leukaemia [Unknown]
  - Chronic lymphocytic leukaemia recurrent [Unknown]

NARRATIVE: CASE EVENT DATE: 20180101
